FAERS Safety Report 6936102-5 (Version None)
Quarter: 2010Q3

REPORT INFORMATION
  Report Type: 
  Country: None (occurrence: None)
  Receive Date: 20100823
  Receipt Date: 20100812
  Transmission Date: 20110219
  Serious: Yes (Other)
  Sender: FDA-Public Use
  Company Number: BR-ASTRAZENECA-2010SE38108

PATIENT
  Age: 62 Year
  Sex: Male
  Weight: 96 kg

DRUGS (3)
  1. ATACAND HCT [Suspect]
     Indication: HYPERTENSION
     Dosage: 16/12.5 MG DAILY
     Route: 048
     Dates: start: 20040101
  2. UNOPROST [Concomitant]
     Indication: PROSTATOMEGALY
     Route: 048
     Dates: start: 20080101
  3. FINASTERIDE [Concomitant]
     Indication: PROSTATOMEGALY
     Route: 048
     Dates: start: 20080101

REACTIONS (9)
  - BLOOD PRESSURE INADEQUATELY CONTROLLED [None]
  - CATARACT [None]
  - DENGUE FEVER [None]
  - DRUG INEFFECTIVE [None]
  - EYE DISORDER [None]
  - PROSTATOMEGALY [None]
  - RENAL PAIN [None]
  - ULCERATIVE KERATITIS [None]
  - URETHRAL ATROPHY [None]
